FAERS Safety Report 9321063 (Version 1)
Quarter: 2013Q2

REPORT INFORMATION
  Report Type: Spontaneous
  Country: US (occurrence: None)
  Receive Date: 20130530
  Receipt Date: 20130530
  Transmission Date: 20140414
  Serious: Yes (Other)
  Sender: FDA-Public Use
  Company Number: None

PATIENT
  Age: 23 Year
  Sex: Male
  Weight: 77.11 kg

DRUGS (1)
  1. ASACOL HD [Suspect]
     Indication: COLITIS ULCERATIVE
     Dosage: 2 TAB
     Route: 048

REACTIONS (5)
  - Muscle spasms [None]
  - Rectal haemorrhage [None]
  - Diarrhoea [None]
  - Pyrexia [None]
  - White blood cell count increased [None]
